FAERS Safety Report 6863409-2 (Version None)
Quarter: 2010Q3

REPORT INFORMATION
  Report Type: 
  Country: None (occurrence: None)
  Receive Date: 20100721
  Receipt Date: 20100713
  Transmission Date: 20110219
  Serious: Yes (Hospitalization, Other)
  Sender: FDA-Public Use
  Company Number: US-JNJFOC-20070205112

PATIENT
  Sex: Female

DRUGS (2)
  1. RISERPDAL [Suspect]
     Indication: SCHIZOPHRENIA
     Route: 065
  2. ZYPREXA [Suspect]
     Indication: SCHIZOPHRENIA

REACTIONS (2)
  - DIABETIC NEUROPATHY [None]
  - TYPE 2 DIABETES MELLITUS [None]
